FAERS Safety Report 6581594-7 (Version None)
Quarter: 2010Q1

REPORT INFORMATION
  Report Type: 
  Country: None (occurrence: None)
  Receive Date: 20100215
  Receipt Date: 20100205
  Transmission Date: 20100710
  Serious: Yes (Hospitalization)
  Sender: FDA-Public Use
  Company Number: US-JNJFOC-20100203667

PATIENT
  Sex: Female
  Weight: 47.17 kg

DRUGS (4)
  1. DURAGESIC-100 [Suspect]
     Indication: INTERVERTEBRAL DISC PROTRUSION
     Route: 062
  2. DURAGESIC-100 [Suspect]
     Dosage: NDC 50458-093
     Route: 062
  3. DILAUDID [Concomitant]
     Indication: PAIN
     Route: 048
  4. SOMA [Concomitant]
     Indication: PAIN
     Route: 048

REACTIONS (4)
  - FEELING ABNORMAL [None]
  - OVARIAN CYST [None]
  - PRODUCT QUALITY ISSUE [None]
  - WITHDRAWAL SYNDROME [None]
